FAERS Safety Report 4585952-1 (Version None)
Quarter: 2005Q1

REPORT INFORMATION
  Report Type: 
  Country: None (occurrence: None)
  Receive Date: 20050214
  Receipt Date: 20050131
  Transmission Date: 20050727
  Serious: Yes (Hospitalization)
  Sender: FDA-Public Use
  Company Number: 2005-00478

PATIENT
  Age: 77 Year
  Sex: Male

DRUGS (1)
  1. TRELSTAR LA (WATSON LABORATORIES)(TRIPTORELIN PAMOATE) INJECTABLE SUSP [Suspect]
     Indication: PROSTATE CANCER
     Dosage: 11.25 MG, DAILY, INTRAMUSCULAR
     Route: 030
     Dates: start: 20040824, end: 20040824

REACTIONS (2)
  - INJECTION SITE ABSCESS [None]
  - STAPHYLOCOCCAL ABSCESS [None]
